FAERS Safety Report 10449573 (Version 5)
Quarter: 2015Q2

REPORT INFORMATION
  Report Type: Spontaneous
  Country: US (occurrence: US)
  Receive Date: 20140912
  Receipt Date: 20150626
  Transmission Date: 20150821
  Serious: Yes (Other)
  Sender: FDA-Public Use
  Company Number: US-UCBSA-117378

PATIENT
  Age: 46 Year
  Sex: Female
  Weight: 50 kg

DRUGS (4)
  1. DESMOPRESSIN ACETATE. [Concomitant]
     Active Substance: DESMOPRESSIN ACETATE
     Indication: URINARY INCONTINENCE
  2. SINGULAIR [Concomitant]
     Active Substance: MONTELUKAST SODIUM
     Indication: ASTHMA
     Dosage: 10 MG, ONCE DAILY (QD)
     Dates: start: 201403
  3. CIMZIA [Suspect]
     Active Substance: CERTOLIZUMAB PEGOL
     Indication: RHEUMATOID ARTHRITIS
     Dosage: 200 MG, EV 2 WEEKS(QOW)
     Route: 058
     Dates: start: 20130508
  4. ANTIPYRINE AND BENZOCAINE [Concomitant]
     Active Substance: ANTIPYRINE\BENZOCAINE
     Indication: PAIN
     Dosage: UNK, AS NEEDED (PRN)

REACTIONS (7)
  - Vertigo [Unknown]
  - Hallucination, olfactory [Unknown]
  - Concussion [Not Recovered/Not Resolved]
  - Decreased appetite [Unknown]
  - Ovarian cyst [Unknown]
  - Abdominal pain upper [Unknown]
  - Sensation of foreign body [Not Recovered/Not Resolved]

NARRATIVE: CASE EVENT DATE: 2014
